FAERS Safety Report 23566657 (Version 2)
Quarter: 2024Q4

REPORT INFORMATION
  Report Type: Report from Study
  Country: US (occurrence: US)
  Receive Date: 20240226
  Receipt Date: 20241105
  Transmission Date: 20250115
  Serious: Yes (Death)
  Sender: AMNEAL
  Company Number: US-AMNEAL PHARMACEUTICALS-2023-AMRX-00980

PATIENT
  Age: 71 Year
  Sex: Female

DRUGS (2)
  1. CARBIDOPA\LEVODOPA [Suspect]
     Active Substance: CARBIDOPA\LEVODOPA
     Indication: Parkinson^s disease
     Dosage: 36.25/145 MILLIGRAM, 01 CAPSULES, TID
     Route: 048
     Dates: start: 20230101, end: 20230201
  2. CARBIDOPA\LEVODOPA [Suspect]
     Active Substance: CARBIDOPA\LEVODOPA
     Dosage: 1 CAPSULES (48.75/195 MILLIGRAM), TID
     Route: 048
     Dates: start: 20230322, end: 20241010

REACTIONS (9)
  - Neoplasm malignant [Fatal]
  - Tremor [Unknown]
  - Illness [Unknown]
  - Abdominal pain upper [Unknown]
  - Restlessness [Unknown]
  - Paraesthesia oral [Unknown]
  - Erythema [Unknown]
  - Musculoskeletal stiffness [Unknown]
  - Dry mouth [Unknown]

NARRATIVE: CASE EVENT DATE: 20230101
